FAERS Safety Report 4706262-5 (Version None)
Quarter: 2005Q2

REPORT INFORMATION
  Report Type: 
  Country: None (occurrence: None)
  Receive Date: 20050629
  Receipt Date: 20050419
  Transmission Date: 20051028
  Serious: No
  Sender: FDA-Public Use
  Company Number: 05P-163-0297892-00

PATIENT
  Age: 65 Year
  Sex: Female
  Weight: 86.1834 kg

DRUGS (11)
  1. HUMIRA [Suspect]
     Indication: RHEUMATOID ARTHRITIS
     Dosage: 40 MG, 1 IN 2 WK, SUBCUTANEOUS
     Route: 058
     Dates: start: 20050305
  2. SALSALATE [Concomitant]
  3. AYATHIOPRINE [Concomitant]
  4. DOXAZOSIN [Concomitant]
  5. ESTROGENS CONJUGATED [Concomitant]
  6. LANSOPRAZOLE [Concomitant]
  7. AMLODIPINE BESILATE [Concomitant]
  8. HYDRCHLOROTHIAZIDE [Concomitant]
  9. TRAMADOL HCL [Concomitant]
  10. COMBIVENT [Concomitant]
  11. FOLIC ACID [Concomitant]

REACTIONS (1)
  - INJECTION SITE PAIN [None]
